FAERS Safety Report 6190153-X (Version None)
Quarter: 2009Q2

REPORT INFORMATION
  Report Type: 
  Country: None (occurrence: None)
  Receive Date: 20090514
  Receipt Date: 20090511
  Transmission Date: 20091009
  Serious: Yes (Other)
  Sender: FDA-Public Use
  Company Number: JP-ASTRAZENECA-2009AP03085

PATIENT
  Age: 50 Year
  Sex: Male

DRUGS (3)
  1. ZOMIG [Suspect]
     Indication: MIGRAINE
     Route: 048
     Dates: start: 20090507
  2. RESTAS [Concomitant]
     Dosage: ALMOST THE MAXIMUM DOSE
     Route: 048
     Dates: start: 20090507
  3. LUDIOMIL [Concomitant]
     Dosage: ALMOST THE MAXIMUM DOSE
     Route: 048
     Dates: start: 20090507

REACTIONS (3)
  - HEADACHE [None]
  - NAUSEA [None]
  - PALLOR [None]
